FAERS Safety Report 5538004-8 (Version None)
Quarter: 2007Q4

REPORT INFORMATION
  Report Type: 
  Country: None (occurrence: None)
  Receive Date: 20071123
  Receipt Date: 20070130
  Transmission Date: 20080405
  Serious: Yes (Other)
  Sender: FDA-Public Use
  Company Number: US-JNJFOC-20061103667

PATIENT
  Age: 63 Year
  Sex: Female
  Weight: 68.0396 kg

DRUGS (6)
  1. LEVAQUIN [Suspect]
     Indication: SINUS DISORDER
     Dosage: 750 MG, IN 1 DAY, ORAL
     Route: 048
     Dates: start: 20061113, end: 20061114
  2. LEVAQUIN [Suspect]
     Indication: UPPER RESPIRATORY TRACT INFECTION
     Dosage: 750 MG, IN 1 DAY, ORAL
     Route: 048
     Dates: start: 20061113, end: 20061114
  3. RED RICE YEAST (YEAST) UNSPECIFIED [Concomitant]
  4. GLUCOSAMINE (GLUCOSAMINE) UNSPECIFIED [Concomitant]
  5. VITAMIN C (ASCORBIC ACID) UNSPECIFIED [Concomitant]
  6. VITAMINS (VITAMINS) UNSPECIFIED [Concomitant]

REACTIONS (1)
  - HYPERSENSITIVITY [None]
